FAERS Safety Report 7769599-1 (Version None)
Quarter: 2011Q3

REPORT INFORMATION
  Report Type: 
  Country: None (occurrence: None)
  Receive Date: 20110922
  Receipt Date: 20110719
  Transmission Date: 20111222
  Serious: No
  Sender: FDA-Public Use
  Company Number: US-ASTRAZENECA-2011SE43092

PATIENT
  Age: 31 Year
  Sex: Female
  Weight: 91.2 kg

DRUGS (10)
  1. SEROQUEL XR [Suspect]
     Indication: DEPRESSION
     Route: 048
     Dates: start: 20100101
  2. SEROQUEL XR [Suspect]
     Indication: PARANOIA
     Route: 048
     Dates: start: 20100101
  3. PROZAC [Concomitant]
  4. MORPHINE [Concomitant]
  5. M.V.I. [Concomitant]
  6. OMEPRAZOLE [Concomitant]
  7. XANAX [Concomitant]
  8. OXYCODONE HCL [Concomitant]
  9. SEROQUEL XR [Suspect]
     Indication: BIPOLAR DISORDER
     Route: 048
     Dates: start: 20100101
  10. HYDROCODONE [Concomitant]

REACTIONS (5)
  - ANXIETY [None]
  - SCREAMING [None]
  - ABNORMAL BEHAVIOUR [None]
  - DRUG DOSE OMISSION [None]
  - CRYING [None]
